FAERS Safety Report 7846919-0 (Version None)
Quarter: 2011Q4

REPORT INFORMATION
  Report Type: 
  Country: None (occurrence: None)
  Receive Date: 20111025
  Receipt Date: 20111018
  Transmission Date: 20120403
  Serious: Yes (Disabling)
  Sender: FDA-Public Use
  Company Number: US-ASTRAZENECA-2011SE62907

PATIENT
  Sex: Male

DRUGS (2)
  1. PULMICORT FLEXHALER [Suspect]
     Dosage: 90 MICROGRAMS, TWO PUFFS TWO TIMES A DAY, 60 DOSES
     Route: 055
  2. AVELOX [Suspect]
     Route: 065

REACTIONS (3)
  - TENDON RUPTURE [None]
  - WRONG TECHNIQUE IN DRUG USAGE PROCESS [None]
  - GRANULOMA [None]
